FAERS Safety Report 5740557-1 (Version None)
Quarter: 2008Q2

REPORT INFORMATION
  Report Type: 
  Country: None (occurrence: None)
  Receive Date: 20080516
  Receipt Date: 20080506
  Transmission Date: 20081010
  Serious: Yes (Other)
  Sender: FDA-Public Use
  Company Number: US-JNJFOC-20080305959

PATIENT
  Sex: Female
  Weight: 65.32 kg

DRUGS (7)
  1. TOPAMAX [Suspect]
     Route: 048
  2. TOPAMAX [Suspect]
     Indication: MIGRAINE
     Route: 048
  3. TOPAMAX [Suspect]
     Indication: MIGRAINE WITH AURA
     Route: 048
  4. EFFEXOR [Concomitant]
     Indication: DEPRESSION
     Route: 048
  5. AVAPRO [Concomitant]
  6. AVAPRO [Concomitant]
     Indication: HYPERTENSION
  7. BYSTOLIC [Concomitant]
     Indication: BLOOD PRESSURE

REACTIONS (9)
  - DIZZINESS [None]
  - FEELING HOT [None]
  - NAUSEA [None]
  - NECK MASS [None]
  - NECK PAIN [None]
  - PALPITATIONS [None]
  - PRESYNCOPE [None]
  - REPETITIVE SPEECH [None]
  - VERTIGO [None]
